FAERS Safety Report 9913247 (Version 1)
Quarter: 2014Q1

REPORT INFORMATION
  Report Type: Spontaneous
  Country: US (occurrence: None)
  Receive Date: 20140214
  Receipt Date: 20140214
  Transmission Date: 20141002
  Serious: Yes (Other)
  Sender: FDA-Public Use
  Company Number: MAC-14-003

PATIENT
  Age: 52 Year
  Sex: Female
  Weight: 56.7 kg

DRUGS (5)
  1. CLEARLAX [Suspect]
     Dates: start: 20140122
  2. CALCIUM [Concomitant]
  3. FISH OIL [Concomitant]
  4. DAILY MULTIVITAMIN [Concomitant]
  5. RANITIDINE [Concomitant]

REACTIONS (9)
  - Abdominal discomfort [None]
  - Back pain [None]
  - Dizziness [None]
  - Gait disturbance [None]
  - Vomiting [None]
  - Tremor [None]
  - Rash [None]
  - Motor dysfunction [None]
  - Electrolyte depletion [None]
